FAERS Safety Report 18819731 (Version 1)
Quarter: 2021Q1

REPORT INFORMATION
  Report Type: Spontaneous
  Country: US (occurrence: US)
  Receive Date: 20210202
  Receipt Date: 20210202
  Transmission Date: 20210419
  Serious: No
  Sender: FDA-Public Use
  Company Number: US-ELI_LILLY_AND_COMPANY-US202101011622

PATIENT
  Sex: Female

DRUGS (3)
  1. HUMALOG KWIKPEN [Suspect]
     Active Substance: INSULIN LISPRO
     Indication: TYPE 2 DIABETES MELLITUS
     Dosage: 28 U, PRN
     Route: 058
     Dates: start: 2020
  2. LANTUS [Concomitant]
     Active Substance: INSULIN GLARGINE
     Indication: TYPE 2 DIABETES MELLITUS
     Dosage: 40 U, BID
  3. HUMALOG KWIKPEN [Suspect]
     Active Substance: INSULIN LISPRO
     Dosage: 36 U, PRN
     Route: 058
     Dates: start: 2020

REACTIONS (3)
  - Discomfort [Unknown]
  - Blood glucose increased [Unknown]
  - Glycosylated haemoglobin increased [Recovered/Resolved]

NARRATIVE: CASE EVENT DATE: 20210122
